FAERS Safety Report 5704925-6 (Version None)
Quarter: 2008Q2

REPORT INFORMATION
  Report Type: 
  Country: None (occurrence: None)
  Receive Date: 20080414
  Receipt Date: 20080317
  Transmission Date: 20081010
  Serious: No
  Sender: FDA-Public Use
  Company Number: US-BOEHRINGER INGELHEIM GMBH, GERMANY-2008-BP-04072BP

PATIENT
  Sex: Male

DRUGS (2)
  1. SPIRIVA [Suspect]
     Indication: EMPHYSEMA
     Route: 055
     Dates: start: 20040101
  2. ACETASOL HC [Concomitant]
     Indication: EAR DISORDER

REACTIONS (3)
  - DIZZINESS [None]
  - FEELING ABNORMAL [None]
  - ORAL DISCOMFORT [None]
